FAERS Safety Report 18593301 (Version 1)
Quarter: 2020Q4

REPORT INFORMATION
  Report Type: Spontaneous
  Country: US (occurrence: US)
  Receive Date: 20201209
  Receipt Date: 20201209
  Transmission Date: 20210114
  Serious: No
  Sender: FDA-Public Use
  Company Number: US-JNJFOC-20201137751

PATIENT
  Age: 30 Year
  Sex: Male
  Weight: 129.39 kg

DRUGS (1)
  1. MENS ROGAINE EXTRA STRENGTH [Suspect]
     Active Substance: MINOXIDIL
     Indication: HAIR GROWTH ABNORMAL
     Dosage: DOSE AND FREQUENCY: FULL HAND SIZE OF THE FOAM EVERYDAY
     Route: 061
     Dates: start: 201911, end: 201911

REACTIONS (3)
  - Skin laceration [Unknown]
  - Product administered at inappropriate site [Unknown]
  - Product use in unapproved indication [Unknown]

NARRATIVE: CASE EVENT DATE: 201911
